FAERS Safety Report 8925737 (Version 1)
Quarter: 2012Q4

REPORT INFORMATION
  Report Type: 
  Country: US (occurrence: US)
  Receive Date: 20121126
  Receipt Date: 20121126
  Transmission Date: 20130627
  Serious: Yes (Other)
  Sender: FDA-Public Use
  Company Number: US-PFIZER INC-2012291806

PATIENT
  Age: 54 Year
  Sex: Female
  Weight: 56 kg

DRUGS (4)
  1. CORTEF [Suspect]
     Indication: ADDISON^S DISEASE
     Dosage: 5 mg, 3x/day
     Route: 048
  2. HYDROCORTISONE [Suspect]
     Dosage: UNK
  3. SOLU-CORTEF [Concomitant]
     Dosage: UNK
     Route: 050
  4. PROTONIX [Concomitant]
     Dosage: UNK

REACTIONS (4)
  - Coeliac disease [Unknown]
  - Drug intolerance [Unknown]
  - Wrong technique in drug usage process [Unknown]
  - Drug ineffective [Unknown]
